FAERS Safety Report 6199101-X (Version None)
Quarter: 2009Q2

REPORT INFORMATION
  Report Type: 
  Country: None (occurrence: None)
  Receive Date: 20090521
  Receipt Date: 20090521
  Transmission Date: 20091009
  Serious: No
  Sender: FDA-Public Use
  Company Number: None

PATIENT
  Age: 44 Year
  Sex: Female
  Weight: 112.0385 kg

DRUGS (2)
  1. LEVAQUIN [Suspect]
     Indication: LOWER RESPIRATORY TRACT INFECTION
     Dosage: 500 MG ONCE A DAY ORALLY
     Route: 048
     Dates: start: 20090509, end: 20090512
  2. LEVAQUIN [Suspect]
     Indication: SINUSITIS
     Dosage: 500 MG ONCE A DAY ORALLY
     Route: 048
     Dates: start: 20090509, end: 20090512

REACTIONS (7)
  - ARTHRALGIA [None]
  - CHEST PAIN [None]
  - HYPERHIDROSIS [None]
  - INSOMNIA [None]
  - MYALGIA [None]
  - PALPITATIONS [None]
  - PANIC REACTION [None]
